FAERS Safety Report 6565248-9 (Version None)
Quarter: 2010Q1

REPORT INFORMATION
  Report Type: 
  Country: None (occurrence: None)
  Receive Date: 20100201
  Receipt Date: 20100127
  Transmission Date: 20100710
  Serious: Yes (Death)
  Sender: FDA-Public Use
  Company Number: JP-ROCHE-675764

PATIENT
  Sex: Male
  Weight: 56 kg

DRUGS (5)
  1. ACTEMRA [Suspect]
     Indication: RHEUMATOID ARTHRITIS
     Route: 041
     Dates: start: 20091202, end: 20091202
  2. PREDNISOLONE [Concomitant]
     Dosage: DRUG REPORTED AS UNKNOWNDRUG(PREDNISOLONE)
     Route: 048
  3. LOXONIN [Concomitant]
     Dosage: DRUG REPORTED AS LOXONIN(LOXOPROFEN SODIUM)
     Route: 048
  4. FAMOTIDINE [Concomitant]
     Route: 048
  5. BACTRAMIN [Concomitant]
     Route: 048

REACTIONS (1)
  - CEREBRAL ISCHAEMIA [None]
